FAERS Safety Report 5844882-5 (Version None)
Quarter: 2008Q3

REPORT INFORMATION
  Report Type: 
  Country: None (occurrence: None)
  Receive Date: 20080814
  Receipt Date: 20080806
  Transmission Date: 20090109
  Serious: Yes (Other)
  Sender: FDA-Public Use
  Company Number: GB-AMGEN-US300398

PATIENT
  Age: 9 Year
  Sex: Male

DRUGS (5)
  1. ENBREL [Suspect]
     Indication: DRUG USE FOR UNKNOWN INDICATION
     Dosage: UNKNOWN
     Route: 065
  2. METHOTREXATE [Suspect]
     Dates: end: 20060125
  3. METHOTREXATE [Suspect]
     Route: 058
     Dates: end: 20060125
  4. METHOTREXATE [Suspect]
     Route: 058
     Dates: start: 20060101, end: 20060307
  5. METHOTREXATE [Suspect]
     Route: 048
     Dates: end: 20070322

REACTIONS (5)
  - CONDITION AGGRAVATED [None]
  - HYPOCHROMIC ANAEMIA [None]
  - INFLAMMATION [None]
  - NEUTROPHILIA [None]
  - UNEVALUABLE EVENT [None]
